FAERS Safety Report 8610264-6 (Version None)
Quarter: 2012Q3

REPORT INFORMATION
  Report Type: 
  Country: None (occurrence: None)
  Receive Date: 20120810
  Receipt Date: 20120810
  Transmission Date: 20120928
  Serious: Yes (Other)
  Sender: FDA-Public Use
  Company Number: None

PATIENT
  Age: 60 Year
  Sex: Male
  Weight: 116.1208 kg

DRUGS (1)
  1. COLGATE OPTIC WHITE TOOTH PASTE 0.76%,0.15% [Suspect]

REACTIONS (9)
  - CHAPPED LIPS [None]
  - GINGIVAL BLISTER [None]
  - LIP DRY [None]
  - TOOTH DISORDER [None]
  - LIP SWELLING [None]
  - ERYTHEMA [None]
  - LIP HAEMORRHAGE [None]
  - ORAL MUCOSAL DISCOLOURATION [None]
  - ORAL PAIN [None]
